FAERS Safety Report 7499555-2 (Version None)
Quarter: 2011Q2

REPORT INFORMATION
  Report Type: 
  Country: None (occurrence: None)
  Receive Date: 20110516
  Receipt Date: 20110418
  Transmission Date: 20111010
  Serious: Yes (Death, Hospitalization)
  Sender: FDA-Public Use
  Company Number: 2011SP020781

PATIENT
  Age: 60 Year
  Sex: Female

DRUGS (6)
  1. EPOETIN ALFA [Concomitant]
  2. RIBAVIRIN [Suspect]
     Indication: HEPATITIS C
  3. BUPROPION HCL [Concomitant]
  4. OMEPRAZOLE [Concomitant]
  5. PEGINTERFERON ALFA-2B [Suspect]
     Indication: HEPATITIS C
  6. FLUOXETINE HCL [Concomitant]

REACTIONS (72)
  - DIARRHOEA [None]
  - ECCHYMOSIS [None]
  - OCCULT BLOOD POSITIVE [None]
  - SINUS TACHYCARDIA [None]
  - PETECHIAE [None]
  - LYMPHOHISTIOCYTOSIS [None]
  - IMMUNOSUPPRESSION [None]
  - URINE ABNORMALITY [None]
  - URINE CANNABINOIDS INCREASED [None]
  - FAECAL INCONTINENCE [None]
  - PUPILS UNEQUAL [None]
  - MYDRIASIS [None]
  - PLEURAL EFFUSION [None]
  - RED BLOOD CELLS CSF POSITIVE [None]
  - ANTINUCLEAR ANTIBODY POSITIVE [None]
  - SMOOTH MUSCLE ANTIBODY POSITIVE [None]
  - DISEASE COMPLICATION [None]
  - URINARY INCONTINENCE [None]
  - CHOLELITHIASIS [None]
  - LUNG NEOPLASM [None]
  - FEBRILE NEUTROPENIA [None]
  - ESCHERICHIA TEST POSITIVE [None]
  - GENERAL PHYSICAL HEALTH DETERIORATION [None]
  - KIDNEY INFECTION [None]
  - CARDIAC INFECTION [None]
  - SYSTEMIC CANDIDA [None]
  - RESTLESSNESS [None]
  - OCULAR ICTERUS [None]
  - COAGULATION FACTOR V LEVEL DECREASED [None]
  - SKIN LESION [None]
  - INTERLEUKIN-2 RECEPTOR INCREASED [None]
  - SPLENIC INFECTION [None]
  - SKIN BACTERIAL INFECTION [None]
  - ASTERIXIS [None]
  - PROTEIN URINE PRESENT [None]
  - ATELECTASIS [None]
  - SKIN ULCER [None]
  - SPLENOMEGALY [None]
  - GASTRIC VARICES [None]
  - ASCITES [None]
  - MUSCLE HAEMORRHAGE [None]
  - PULMONARY OEDEMA [None]
  - PANCYTOPENIA [None]
  - NECROSIS [None]
  - UNRESPONSIVE TO STIMULI [None]
  - ACINETOBACTER TEST POSITIVE [None]
  - AGITATION [None]
  - DISORIENTATION [None]
  - BLOOD PRESSURE SYSTOLIC INCREASED [None]
  - PUPILLARY REFLEX IMPAIRED [None]
  - LYMPHADENOPATHY [None]
  - HYPERTRIGLYCERIDAEMIA [None]
  - PULMONARY MASS [None]
  - PULMONARY CAVITATION [None]
  - PLEURAL FIBROSIS [None]
  - CONFUSIONAL STATE [None]
  - OEDEMA PERIPHERAL [None]
  - BLOOD URINE PRESENT [None]
  - ACQUIRED DIAPHRAGMATIC EVENTRATION [None]
  - CSF GLUCOSE DECREASED [None]
  - HEPATIC NEOPLASM [None]
  - LOCALISED INTRAABDOMINAL FLUID COLLECTION [None]
  - BRONCHOPULMONARY ASPERGILLOSIS [None]
  - SEPSIS [None]
  - ABNORMAL BEHAVIOUR [None]
  - DYSARTHRIA [None]
  - NO THERAPEUTIC RESPONSE [None]
  - HEPATIC CIRRHOSIS [None]
  - HISTIOCYTOSIS HAEMATOPHAGIC [None]
  - HYPOCOAGULABLE STATE [None]
  - HYPOTENSION [None]
  - PATHOGEN RESISTANCE [None]
